FAERS Safety Report 8211638-8 (Version None)
Quarter: 2012Q1

REPORT INFORMATION
  Report Type: 
  Country: None (occurrence: None)
  Receive Date: 20120315
  Receipt Date: 20120313
  Transmission Date: 20120608
  Serious: Yes (Hospitalization, Other)
  Sender: FDA-Public Use
  Company Number: JP-PFIZER INC-2012026863

PATIENT
  Age: 45 Year
  Sex: Male

DRUGS (3)
  1. HALCION [Suspect]
     Dosage: UNK
     Route: 048
  2. PHENOBARBITAL TAB [Suspect]
     Dosage: UNK
     Route: 048
  3. FLUNITRAZEPAM [Suspect]
     Dosage: UNK
     Route: 048

REACTIONS (6)
  - RHABDOMYOLYSIS [None]
  - RENAL FAILURE ACUTE [None]
  - LOSS OF CONSCIOUSNESS [None]
  - TOXICITY TO VARIOUS AGENTS [None]
  - SUICIDE ATTEMPT [None]
  - DEHYDRATION [None]
